FAERS Safety Report 24460356 (Version 1)
Quarter: 2024Q4

REPORT INFORMATION
  Report Type: Spontaneous
  Country: US (occurrence: US)
  Receive Date: 20241018
  Receipt Date: 20241018
  Transmission Date: 20250115
  Serious: No
  Sender: ROCHE
  Company Number: US-ROCHE-3571202

PATIENT
  Age: 75 Year
  Sex: Male
  Weight: 68.9 kg

DRUGS (7)
  1. RITUXIMAB [Suspect]
     Active Substance: RITUXIMAB
     Indication: Diffuse large B-cell lymphoma
     Route: 042
  2. ACETAMINOPHEN [Concomitant]
     Active Substance: ACETAMINOPHEN
     Route: 048
  3. CYCLOPHOSPHAMIDE [Concomitant]
     Active Substance: CYCLOPHOSPHAMIDE
  4. PREDNISOLONE [Concomitant]
     Active Substance: PREDNISOLONE
  5. VINCRISTINE [Concomitant]
     Active Substance: VINCRISTINE
  6. DOXORUBICIN [Concomitant]
     Active Substance: DOXORUBICIN
  7. METHOTREXATE [Concomitant]
     Active Substance: METHOTREXATE

REACTIONS (1)
  - Ventricular tachycardia [Recovered/Resolved]
